FAERS Safety Report 5478084-1 (Version None)
Quarter: 2007Q4

REPORT INFORMATION
  Report Type: 
  Country: None (occurrence: None)
  Receive Date: 20071005
  Receipt Date: 20061003
  Transmission Date: 20080405
  Serious: No
  Sender: FDA-Public Use
  Company Number: US-BRISTOL-MYERS SQUIBB COMPANY-13529227

PATIENT
  Sex: Female
  Weight: 98 kg

DRUGS (8)
  1. AVAPRO [Suspect]
     Indication: HYPERTENSION
  2. ATENOLOL [Concomitant]
  3. PROCARDIA [Concomitant]
  4. COUMADIN [Concomitant]
  5. CLONIDINE [Concomitant]
  6. AMBIEN CR [Concomitant]
  7. CALCIUM [Concomitant]
  8. MULTI-VITAMIN [Concomitant]

REACTIONS (1)
  - DYSGEUSIA [None]
